FAERS Safety Report 25272220 (Version 1)
Quarter: 2025Q2

REPORT INFORMATION
  Report Type: Spontaneous
  Country: US (occurrence: US)
  Receive Date: 20250506
  Receipt Date: 20250506
  Transmission Date: 20250717
  Serious: No
  Sender: ALCON
  Company Number: US-ALCON LABORATORIES-ALC2024US002853

PATIENT
  Sex: Male

DRUGS (1)
  1. ROCKLATAN [Suspect]
     Active Substance: LATANOPROST\NETARSUDIL MESYLATE
     Indication: Product used for unknown indication
     Route: 047

REACTIONS (1)
  - Ocular hyperaemia [Unknown]
